FAERS Safety Report 16040833 (Version 1)
Quarter: 2019Q2

REPORT INFORMATION
  Report Type: Spontaneous
  Country: US (occurrence: US)
  Receive Date: 20190305
  Receipt Date: 20190305
  Transmission Date: 20190711
  Serious: Yes (Other)
  Sender: FDA-Public Use
  Company Number: None

PATIENT
  Age: 63 Year
  Sex: Female

DRUGS (1)
  1. DOXIL [Suspect]
     Active Substance: DOXORUBICIN HYDROCHLORIDE
     Indication: BREAST CANCER
     Dosage: ?          OTHER FREQUENCY:FOR 2 DOSES;?
     Dates: start: 20190228, end: 20190305

REACTIONS (2)
  - Cough [None]
  - Oropharyngeal discomfort [None]

NARRATIVE: CASE EVENT DATE: 20190305
